FAERS Safety Report 16383415 (Version 9)
Quarter: 2021Q4

REPORT INFORMATION
  Report Type: Spontaneous
  Country: US (occurrence: US)
  Receive Date: 20190603
  Receipt Date: 20211105
  Transmission Date: 20220303
  Serious: Yes (Hospitalization, Other)
  Sender: FDA-Public Use
  Company Number: US-PFIZER INC-2018013797

PATIENT
  Age: 66 Year
  Sex: Male
  Weight: 111 kg

DRUGS (10)
  1. LYRICA [Suspect]
     Active Substance: PREGABALIN
     Indication: Pain
     Dosage: 700 MG, 2X/DAY (2 CAPSULES 2 OF THEM TWICE A DAY)
     Dates: end: 2015
  2. LYRICA [Suspect]
     Active Substance: PREGABALIN
     Indication: Paraesthesia
     Dosage: 300 MG, 2X/DAY
     Route: 048
  3. GABAPENTIN [Concomitant]
     Active Substance: GABAPENTIN
     Dosage: 1800 MG, 3X/DAY (3 TABLETS 3 TIMES A DAY)
  4. GLIPIZIDE [Concomitant]
     Active Substance: GLIPIZIDE
     Indication: Diabetes mellitus
     Dosage: 5 MG, 2X/DAY
  5. IBUPROFEN [Concomitant]
     Active Substance: IBUPROFEN
     Dosage: 800 MG, 2X/DAY
  6. LISINOPRIL [Concomitant]
     Active Substance: LISINOPRIL
     Indication: Prophylaxis
     Dosage: 5 MG, 1X/DAY
  7. METFORMIN [Concomitant]
     Active Substance: METFORMIN HYDROCHLORIDE
     Indication: Diabetes mellitus
     Dosage: 1000 IU, 2X/DAY
     Dates: start: 2009
  8. PLAVIX [Concomitant]
     Active Substance: CLOPIDOGREL BISULFATE
     Dosage: UNK
  9. PRIMIDONE [Concomitant]
     Active Substance: PRIMIDONE
     Dosage: UP TO 100 MG, QHS (EVERY BEDTIME)
  10. SIMVASTATIN [Concomitant]
     Active Substance: SIMVASTATIN
     Indication: Blood cholesterol abnormal
     Dosage: 40 MG, 1X/DAY
     Dates: start: 2016

REACTIONS (17)
  - Spinal osteoarthritis [Unknown]
  - Cerebrovascular accident [Unknown]
  - Hemiplegia [Unknown]
  - Neoplasm malignant [Unknown]
  - Overdose [Unknown]
  - Blood glucose abnormal [Recovered/Resolved]
  - Burning sensation [Recovering/Resolving]
  - Loss of personal independence in daily activities [Recovered/Resolved]
  - Pain [Unknown]
  - Irritability [Not Recovered/Not Resolved]
  - Paraesthesia [Unknown]
  - Asthenia [Unknown]
  - Weight decreased [Unknown]
  - Back pain [Unknown]
  - Hypoaesthesia [Unknown]
  - Fall [Unknown]
  - Gait disturbance [Unknown]

NARRATIVE: CASE EVENT DATE: 20180101
